FAERS Safety Report 24686986 (Version 1)
Quarter: 2024Q4

REPORT INFORMATION
  Report Type: Spontaneous
  Country: BR (occurrence: BR)
  Receive Date: 20241202
  Receipt Date: 20241202
  Transmission Date: 20250114
  Serious: Yes (Other)
  Sender: UCB
  Company Number: BR-UCBSA-2024062188

PATIENT
  Sex: Male

DRUGS (3)
  1. NEUPRO [Suspect]
     Active Substance: ROTIGOTINE
     Indication: Parkinson^s disease
     Dosage: 2 DOSAGE FORMS ONCE DAILY (QD)
     Dates: start: 2019
  2. NEUPRO [Suspect]
     Active Substance: ROTIGOTINE
     Dosage: 8 MILLIGRAM
  3. NEUPRO [Suspect]
     Active Substance: ROTIGOTINE
     Dosage: 12 MILLIGRAM (2 PATCHES OF 6 MG OR 1 PATCH OF 8 MG AND 1 PATCH OF 4 MG) (DOSE INCREASED)
     Dates: start: 2023, end: 20241118

REACTIONS (5)
  - Parkinson^s disease [Unknown]
  - Drug ineffective [Unknown]
  - Off label use [Unknown]
  - Product dose omission issue [Unknown]
  - Product availability issue [Unknown]
